FAERS Safety Report 12094484 (Version 1)
Quarter: 2016Q1

REPORT INFORMATION
  Report Type: Spontaneous
  Country: DE (occurrence: DE)
  Receive Date: 20160219
  Receipt Date: 20160219
  Transmission Date: 20160526
  Serious: Yes (Other)
  Sender: FDA-Public Use
  Company Number: DE-PFIZER INC-2016047414

PATIENT
  Age: 76 Year
  Sex: Female
  Weight: 58 kg

DRUGS (1)
  1. REVATIO [Suspect]
     Active Substance: SILDENAFIL CITRATE
     Dosage: 20 MG, UNK

REACTIONS (2)
  - Muscle spasms [Not Recovered/Not Resolved]
  - Muscle disorder [Unknown]
